FAERS Safety Report 6491403-2 (Version None)
Quarter: 2009Q4

REPORT INFORMATION
  Report Type: 
  Country: None (occurrence: None)
  Receive Date: 20091211
  Receipt Date: 20091210
  Transmission Date: 20100525
  Serious: Yes (Hospitalization)
  Sender: FDA-Public Use
  Company Number: US-GILEAD-2009-0025774

PATIENT
  Sex: Female

DRUGS (20)
  1. LETAIRIS [Suspect]
     Indication: PULMONARY ARTERIAL HYPERTENSION
     Route: 048
     Dates: start: 20091102
  2. TOPROL-XL [Concomitant]
  3. CRESTOR [Concomitant]
  4. PROTONIX [Concomitant]
  5. ASPIRIN [Concomitant]
  6. OXYGEN [Concomitant]
  7. ALBUTEROL [Concomitant]
  8. ALLEGRA [Concomitant]
  9. SPIRIVA [Concomitant]
  10. TAPAZOLE [Concomitant]
  11. BACTRIM [Concomitant]
  12. PREDNISONE [Concomitant]
  13. XANAX [Concomitant]
  14. AMBIEN [Concomitant]
  15. CALTRATE [Concomitant]
  16. MULTI-VITAMINS [Concomitant]
  17. OSTEO-FEM [Concomitant]
  18. FOLIC ACID [Concomitant]
  19. LOVAZA [Concomitant]
  20. VITAMIN D [Concomitant]

REACTIONS (2)
  - LIVER FUNCTION TEST ABNORMAL [None]
  - PYREXIA [None]
